FAERS Safety Report 22278347 (Version 1)
Quarter: 2023Q2

REPORT INFORMATION
  Report Type: Spontaneous
  Country: US (occurrence: US)
  Receive Date: 20230503
  Receipt Date: 20230503
  Transmission Date: 20230722
  Serious: Yes (Other)
  Sender: FDA-Public Use
  Company Number: US-MLMSERVICE-20230414-4219968-1

PATIENT
  Age: 66 Year
  Sex: Female

DRUGS (7)
  1. METHOTREXATE [Suspect]
     Active Substance: METHOTREXATE
     Indication: Placental neoplasm
     Dosage: 3 CYCLES- ON DAY 8 EVERY TWO WEEKS
  2. CISPLATIN [Suspect]
     Active Substance: CISPLATIN
     Indication: Placental neoplasm
     Dosage: 3 CYCLES- ON DAY 1
  3. ETOPOSIDE [Suspect]
     Active Substance: ETOPOSIDE
     Indication: Gestational trophoblastic tumour
  4. DACTINOMYCIN [Suspect]
     Active Substance: DACTINOMYCIN
     Indication: Placental neoplasm
     Dosage: 3 CYCLES- ON DAY 8 EVERY TWO WEEKS
  5. METHOTREXATE [Suspect]
     Active Substance: METHOTREXATE
     Indication: Gestational trophoblastic tumour
     Dosage: 3 CYCLES- ON DAY 8 EVERY TWO WEEKS
  6. CISPLATIN [Suspect]
     Active Substance: CISPLATIN
     Indication: Gestational trophoblastic tumour
     Dosage: 3 CYCLES- ON DAY 1
  7. DACTINOMYCIN [Suspect]
     Active Substance: DACTINOMYCIN
     Indication: Gestational trophoblastic tumour
     Dosage: 3 CYCLES- ON DAY 8 EVERY TWO WEEKS

REACTIONS (5)
  - Febrile neutropenia [Unknown]
  - Stomatitis [Unknown]
  - Drug hypersensitivity [Unknown]
  - Neutropenia [Unknown]
  - Off label use [Unknown]
